FAERS Safety Report 7619607-3 (Version None)
Quarter: 2011Q3

REPORT INFORMATION
  Report Type: 
  Country: None (occurrence: None)
  Receive Date: 20110719
  Receipt Date: 20110322
  Transmission Date: 20111222
  Serious: Yes (Hospitalization, Other)
  Sender: FDA-Public Use
  Company Number: US-BAYER-2011-000951

PATIENT
  Age: 31 Year
  Sex: Female

DRUGS (1)
  1. MIRENA [Suspect]
     Indication: PRODUCT USED FOR UNKNOWN INDICATION
     Dosage: UNK
     Dates: start: 20040130, end: 20080111

REACTIONS (4)
  - DEVICE DISLOCATION [None]
  - DYSPAREUNIA [None]
  - INJURY [None]
  - VULVOVAGINAL DISCOMFORT [None]
